FAERS Safety Report 5721556 (Version 2)
Quarter: 2018Q4

REPORT INFORMATION
  Report Type: Spontaneous
  Country: GB (occurrence: GB)
  Receive Date: 20050114
  Receipt Date: 20181119
  Transmission Date: 20190205
  Serious: Yes (Death, Hospitalization, Disabling, Other)
  Sender: FDA-Public Use
  Company Number: GXKR2003GB00446

PATIENT
  Age: 59 Year
  Sex: Female

DRUGS (2)
  1. WARFARIN [Suspect]
     Active Substance: WARFARIN
     Indication: DEEP VEIN THROMBOSIS
     Route: 065
  2. CARBOPLATIN. [Suspect]
     Active Substance: CARBOPLATIN
     Indication: OVARIAN CANCER
     Dosage: 1 UNK, UNK (1 UG\L)
     Route: 065

REACTIONS (10)
  - Microangiopathic haemolytic anaemia [Fatal]
  - Thrombocytopenia [Fatal]
  - Platelet count decreased [Fatal]
  - Haemolytic uraemic syndrome [Fatal]
  - Melaena [Fatal]
  - Blood creatinine increased [Fatal]
  - Systemic scleroderma [Fatal]
  - Cardiac arrest [Fatal]
  - Acute kidney injury [Fatal]
  - International normalised ratio increased [Fatal]
